FAERS Safety Report 17207485 (Version 1)
Quarter: 2019Q4

REPORT INFORMATION
  Report Type: Spontaneous
  Country: CZ (occurrence: CZ)
  Receive Date: 20191227
  Receipt Date: 20191227
  Transmission Date: 20200122
  Serious: Yes (Hospitalization, Other)
  Sender: FDA-Public Use
  Company Number: CZ-PFIZER INC-2019552117

PATIENT
  Age: 17 Year
  Sex: Male
  Weight: 120 kg

DRUGS (4)
  1. MEROPENEM. [Suspect]
     Active Substance: MEROPENEM
     Indication: KLEBSIELLA INFECTION
     Dosage: UNK
     Dates: start: 201612
  2. ACYCLOVIR [ACICLOVIR] [Concomitant]
     Active Substance: ACYCLOVIR
     Indication: MENINGOCOCCAL INFECTION
     Dosage: UNK
     Dates: start: 201612
  3. CEFTRIAXONE. [Concomitant]
     Active Substance: CEFTRIAXONE
     Indication: MENINGOCOCCAL INFECTION
     Dosage: UNK
     Dates: start: 201612
  4. DEXAMETHASONE. [Concomitant]
     Active Substance: DEXAMETHASONE
     Indication: MENINGOCOCCAL INFECTION
     Dosage: UNK
     Dates: start: 201612

REACTIONS (5)
  - Eye haemorrhage [Recovering/Resolving]
  - Glaucoma [Recovering/Resolving]
  - Endophthalmitis [Recovering/Resolving]
  - Psychotic disorder [Unknown]
  - Organic brain syndrome [Unknown]

NARRATIVE: CASE EVENT DATE: 201612
